FAERS Safety Report 4282436-5 (Version None)
Quarter: 2004Q1

REPORT INFORMATION
  Report Type: 
  Country: None (occurrence: None)
  Receive Date: 20040116
  Receipt Date: 20030723
  Transmission Date: 20041129
  Serious: Yes (Hospitalization)
  Sender: FDA-Public Use
  Company Number: 03P-163-0219870-00

PATIENT
  Age: 54 Year
  Sex: Female
  Weight: 90.7194 kg

DRUGS (6)
  1. MERIDIA [Suspect]
     Indication: WEIGHT DECREASED
     Dosage: SEE IMAGE
     Route: 048
     Dates: start: 20021220
  2. MERIDIA [Suspect]
     Indication: WEIGHT DECREASED
     Dosage: SEE IMAGE
     Route: 048
     Dates: start: 20030601
  3. LEVOTHYROXINE SODIUM [Concomitant]
  4. ESTROGENIC SUBSTANCE [Concomitant]
  5. INDERAL-80 [Concomitant]
  6. LISINOPRIL [Concomitant]

REACTIONS (3)
  - CHEST PAIN [None]
  - HEADACHE [None]
  - TRANSIENT ISCHAEMIC ATTACK [None]
